FAERS Safety Report 9818808 (Version 1)
Quarter: 2013Q4

REPORT INFORMATION
  Report Type: Spontaneous
  Country: US (occurrence: None)
  Receive Date: 20131223
  Receipt Date: 20131223
  Transmission Date: 20140711
  Serious: No
  Sender: FDA-Public Use
  Company Number: 220788

PATIENT
  Age: 54 Year
  Sex: Female

DRUGS (4)
  1. PICATO (0.015%) [Suspect]
     Indication: ACTINIC KERATOSIS
     Dosage: ONCE DAILY FOR 3 DAYS
     Route: 061
     Dates: start: 20130228
  2. ESTRODIOL [Concomitant]
  3. SERTALINE HC1 TABLETS/ MFR UNKNOWN [Concomitant]
  4. LORAZEPAM [Concomitant]

REACTIONS (4)
  - Application site reaction [None]
  - Application site paraesthesia [None]
  - Application site pain [None]
  - Application site erythema [None]
